FAERS Safety Report 7883287-2 (Version None)
Quarter: 2011Q4

REPORT INFORMATION
  Report Type: 
  Country: None (occurrence: None)
  Receive Date: 20111102
  Receipt Date: 20111025
  Transmission Date: 20120403
  Serious: Yes (Other)
  Sender: FDA-Public Use
  Company Number: PHEH2011US07876

PATIENT
  Sex: Female

DRUGS (1)
  1. EXJADE [Suspect]
     Indication: IRON OVERLOAD
     Dosage: 500 MG, QD
     Route: 048
     Dates: start: 20111006

REACTIONS (6)
  - AGEUSIA [None]
  - VISION BLURRED [None]
  - URINE OUTPUT DECREASED [None]
  - VISUAL IMPAIRMENT [None]
  - HYPOAESTHESIA ORAL [None]
  - ABDOMINAL PAIN [None]
